FAERS Safety Report 17837037 (Version 1)
Quarter: 2020Q2

REPORT INFORMATION
  Report Type: Spontaneous
  Country: US (occurrence: US)
  Receive Date: 20200529
  Receipt Date: 20200529
  Transmission Date: 20200714
  Serious: No
  Sender: FDA-Public Use
  Company Number: US-US WORLDMEDS, LLC-USW202003-000460

PATIENT
  Age: 35 Year
  Sex: Male

DRUGS (3)
  1. KLONOPIN [Suspect]
     Active Substance: CLONAZEPAM
     Indication: BLOOD PRESSURE INCREASED
  2. KLONOPIN [Suspect]
     Active Substance: CLONAZEPAM
  3. LUCEMYRA [Suspect]
     Active Substance: LOFEXIDINE
     Indication: DRUG WITHDRAWAL SYNDROME
     Dates: start: 20200224

REACTIONS (4)
  - Restless legs syndrome [Unknown]
  - Somnolence [Unknown]
  - Fatigue [Unknown]
  - Drug withdrawal syndrome [Unknown]

NARRATIVE: CASE EVENT DATE: 20200224
